FAERS Safety Report 16741818 (Version 2)
Quarter: 2019Q3

REPORT INFORMATION
  Report Type: Report from Study
  Country: BR (occurrence: BR)
  Receive Date: 20190826
  Receipt Date: 20190909
  Transmission Date: 20191005
  Serious: Yes (Disabling)
  Sender: FDA-Public Use
  Company Number: BR-ROCHE-2380075

PATIENT
  Age: 65 Year
  Sex: Female
  Weight: 51 kg

DRUGS (30)
  1. ONDANSETRON [Concomitant]
     Active Substance: ONDANSETRON
     Indication: VOMITING
     Route: 065
     Dates: start: 20190703
  2. FILGRASTIM [Concomitant]
     Active Substance: FILGRASTIM
     Indication: NEUTROPENIA
     Route: 065
     Dates: start: 20190704, end: 20190710
  3. DIPHENHYDRAMINE. [Concomitant]
     Active Substance: DIPHENHYDRAMINE
     Route: 065
     Dates: start: 20190718, end: 20190718
  4. DIPHENHYDRAMINE. [Concomitant]
     Active Substance: DIPHENHYDRAMINE
     Route: 065
     Dates: start: 20190725, end: 20190725
  5. BISACODYL. [Concomitant]
     Active Substance: BISACODYL
     Indication: CONSTIPATION PROPHYLAXIS
     Route: 065
     Dates: start: 20190811
  6. FUROSEMIDE. [Concomitant]
     Active Substance: FUROSEMIDE
     Indication: MYOCARDITIS
     Route: 065
     Dates: start: 20190812
  7. DIPHENHYDRAMINE. [Concomitant]
     Active Substance: DIPHENHYDRAMINE
     Route: 065
     Dates: start: 20190809, end: 20190809
  8. METHYLPREDNISOLONE. [Concomitant]
     Active Substance: METHYLPREDNISOLONE
     Indication: MYOCARDITIS
     Route: 042
     Dates: start: 20190809, end: 20190814
  9. PACLITAXEL. [Suspect]
     Active Substance: PACLITAXEL
     Indication: HER-2 POSITIVE BREAST CANCER
     Dosage: DATE OF MOST RECENT DOSE (114.4MG) PRIOR TO EVENT ONSET: 02/AUG/2019
     Route: 042
     Dates: start: 20190718
  10. RANITIDINE. [Concomitant]
     Active Substance: RANITIDINE
     Indication: GASTRITIS
     Route: 065
     Dates: start: 20190625
  11. RANITIDINE. [Concomitant]
     Active Substance: RANITIDINE
     Dosage: PRE INFUSION
     Route: 065
     Dates: start: 20190802, end: 20190802
  12. RED BLOOD CELLS, CONCENTRATED [Concomitant]
     Active Substance: HUMAN RED BLOOD CELL
     Indication: ANAEMIA
     Route: 065
     Dates: start: 20190805, end: 20190805
  13. DEXAMETHASONE. [Concomitant]
     Active Substance: DEXAMETHASONE
     Route: 042
     Dates: start: 20190725, end: 20190725
  14. DIPHENHYDRAMINE. [Concomitant]
     Active Substance: DIPHENHYDRAMINE
     Route: 065
     Dates: start: 20190802, end: 20190802
  15. LACTULOSE. [Concomitant]
     Active Substance: LACTULOSE
     Indication: CONSTIPATION PROPHYLAXIS
     Route: 065
     Dates: start: 20190811
  16. AMLODIPINE [Concomitant]
     Active Substance: AMLODIPINE BESYLATE
     Indication: MYOCARDITIS
     Route: 065
     Dates: start: 20190814
  17. DOXORUBICIN [Suspect]
     Active Substance: DOXORUBICIN
     Indication: HER-2 POSITIVE BREAST CANCER
     Dosage: DATE OF MOST RECENT DOSE (88.2MG) PRIOR TO EVENT ONSET: 03/JUL/2019.
     Route: 042
     Dates: start: 20190521
  18. PERTUZUMAB. [Suspect]
     Active Substance: PERTUZUMAB
     Indication: HER-2 POSITIVE BREAST CANCER
     Dosage: DATE OF MOST RECENT DOSE PRIOR TO EVENT ONSET: 18/JUL/2019
     Route: 042
     Dates: start: 20190718
  19. RANITIDINE. [Concomitant]
     Active Substance: RANITIDINE
     Dosage: PRE INFUSION
     Route: 065
     Dates: start: 20190718, end: 20190718
  20. DOMPERIDONE [Concomitant]
     Active Substance: DOMPERIDONE
     Indication: ABDOMINAL PAIN
     Route: 065
     Dates: start: 20190625
  21. DEXAMETHASONE. [Concomitant]
     Active Substance: DEXAMETHASONE
     Route: 042
     Dates: start: 20190802, end: 20190802
  22. OMEPRAZOL [OMEPRAZOLE] [Concomitant]
     Active Substance: OMEPRAZOLE
     Indication: GASTRITIS
     Route: 065
     Dates: start: 20190625
  23. RANITIDINE. [Concomitant]
     Active Substance: RANITIDINE
     Dosage: PRE INFUSION
     Route: 065
     Dates: start: 20190725, end: 20190725
  24. DEXAMETHASONE. [Concomitant]
     Active Substance: DEXAMETHASONE
     Route: 042
     Dates: start: 20190718, end: 20190718
  25. RANITIDINE. [Concomitant]
     Active Substance: RANITIDINE
     Dosage: PRE INFUSION
     Route: 065
     Dates: start: 20190809, end: 20190809
  26. ENALAPRIL [Concomitant]
     Active Substance: ENALAPRIL
     Indication: MYOCARDITIS
     Route: 065
     Dates: start: 20190812
  27. TRASTUZUMAB. [Suspect]
     Active Substance: TRASTUZUMAB
     Indication: HER-2 POSITIVE BREAST CANCER
     Dosage: DATE OF MOST RECENT DOSE PRIOR TO EVENT ONSET: 18/JUL/2019
     Route: 042
     Dates: start: 20190718
  28. CYCLOPHOSPHAMIDE. [Suspect]
     Active Substance: CYCLOPHOSPHAMIDE
     Indication: HER-2 POSITIVE BREAST CANCER
     Dosage: DATE OF MOST RECENT DOSE (882MG) PRIOR TO EVENT ONSET: 03/JUL/2019.
     Route: 042
     Dates: start: 20190521
  29. DEXAMETHASONE. [Concomitant]
     Active Substance: DEXAMETHASONE
     Route: 042
     Dates: start: 20190809, end: 20190809
  30. ATEZOLIZUMAB. [Suspect]
     Active Substance: ATEZOLIZUMAB
     Indication: HER-2 POSITIVE BREAST CANCER
     Dosage: DATE OF MOST RECENT DOSE PRIOR TO EVENT ONSET:
     Route: 042
     Dates: start: 20190521

REACTIONS (1)
  - Meibomianitis [Not Recovered/Not Resolved]

NARRATIVE: CASE EVENT DATE: 20190806
